FAERS Safety Report 7633845-5 (Version None)
Quarter: 2011Q3

REPORT INFORMATION
  Report Type: 
  Country: None (occurrence: None)
  Receive Date: 20110725
  Receipt Date: 20110718
  Transmission Date: 20111222
  Serious: Yes (Hospitalization)
  Sender: FDA-Public Use
  Company Number: SE-SANOFI-AVENTIS-2011SA046218

PATIENT
  Age: 62 Year
  Sex: Male

DRUGS (10)
  1. LANTUS [Suspect]
     Indication: TYPE 2 DIABETES MELLITUS
     Dosage: DOSE:18 UNIT(S)
     Route: 058
  2. NOVORAPID [Suspect]
     Indication: TYPE 2 DIABETES MELLITUS
     Dosage: DOSE:30 UNIT(S)
     Route: 065
  3. PLACEBO [Suspect]
     Indication: TYPE 2 DIABETES MELLITUS
     Route: 065
     Dates: start: 20101009
  4. ALDOSTERONE [Concomitant]
  5. HMG COA REDUCTASE INHIBITORS [Concomitant]
  6. ANTI-DIABETICS [Suspect]
     Indication: TYPE 2 DIABETES MELLITUS
     Dates: start: 20101009
  7. BETA BLOCKING AGENTS [Concomitant]
  8. ANGIOTENSIN II [Concomitant]
  9. DIURETICS [Concomitant]
  10. CALCIUM CHANNEL BLOCKERS [Concomitant]

REACTIONS (6)
  - CONCUSSION [None]
  - CHILLS [None]
  - DELIRIUM [None]
  - HYPOGLYCAEMIC UNCONSCIOUSNESS [None]
  - ARTHRALGIA [None]
  - FALL [None]
